FAERS Safety Report 11129884 (Version 1)
Quarter: 2015Q2

REPORT INFORMATION
  Report Type: Spontaneous
  Country: US (occurrence: US)
  Receive Date: 20150521
  Receipt Date: 20150521
  Transmission Date: 20150821
  Serious: Yes (Hospitalization)
  Sender: FDA-Public Use
  Company Number: US-ACTELION-A-NJ2015-118111

PATIENT
  Age: 68 Year
  Sex: Female

DRUGS (8)
  1. OPSUMIT [Suspect]
     Active Substance: MACITENTAN
     Indication: PULMONARY ARTERIAL HYPERTENSION
     Dosage: 10 MG, QD
     Route: 048
     Dates: start: 20141214
  2. FUROSEMIDE. [Concomitant]
     Active Substance: FUROSEMIDE
  3. ALBUTEROL. [Concomitant]
     Active Substance: ALBUTEROL
  4. XARELTO [Concomitant]
     Active Substance: RIVAROXABAN
  5. AMIODARONE [Concomitant]
     Active Substance: AMIODARONE
  6. ELIQUIS [Suspect]
     Active Substance: APIXABAN
     Indication: PRODUCT USED FOR UNKNOWN INDICATION
     Route: 065
  7. FLOVENT [Concomitant]
     Active Substance: FLUTICASONE PROPIONATE
  8. JAKAFI [Concomitant]
     Active Substance: RUXOLITINIB

REACTIONS (1)
  - Epistaxis [Unknown]
